FAERS Safety Report 4273882-4 (Version None)
Quarter: 2004Q1

REPORT INFORMATION
  Report Type: 
  Country: None (occurrence: None)
  Receive Date: 20040115
  Receipt Date: 20040105
  Transmission Date: 20041129
  Serious: Yes (Other)
  Sender: FDA-Public Use
  Company Number: HQWYE497624OCT03

PATIENT
  Age: 73 Year
  Sex: Male

DRUGS (1)
  1. CORDAREX (AMIODARONE, TABLET) [Suspect]
     Indication: ATRIAL FLUTTER
     Dosage: 200 MG 1X PER 1 DAY ORAL
     Route: 048
     Dates: start: 20030201, end: 20030801

REACTIONS (6)
  - ANAL SPHINCTER ATONY [None]
  - CORNEAL DISORDER [None]
  - HEPATIC FUNCTION ABNORMAL [None]
  - NEUROMYOPATHY [None]
  - PULMONARY FIBROSIS [None]
  - VOCAL CORD PARALYSIS [None]
